FAERS Safety Report 7441530-8 (Version None)
Quarter: 2011Q2

REPORT INFORMATION
  Report Type: 
  Country: None (occurrence: None)
  Receive Date: 20110425
  Receipt Date: 20110425
  Transmission Date: 20111010
  Serious: Yes (Hospitalization)
  Sender: FDA-Public Use
  Company Number: None

PATIENT
  Age: 68 Year
  Sex: Female
  Weight: 75.7507 kg

DRUGS (2)
  1. CISPLATIN [Suspect]
     Indication: NON-SMALL CELL LUNG CANCER
     Dates: start: 20110306, end: 20110404
  2. ETOPRIDE [Concomitant]

REACTIONS (5)
  - DIARRHOEA [None]
  - BLOOD PRESSURE DECREASED [None]
  - DEHYDRATION [None]
  - ORAL CANDIDIASIS [None]
  - WEIGHT DECREASED [None]
